FAERS Safety Report 5354075-6 (Version None)
Quarter: 2007Q2

REPORT INFORMATION
  Report Type: 
  Country: None (occurrence: None)
  Receive Date: 20070612
  Receipt Date: 20070607
  Transmission Date: 20071010
  Serious: Yes (Other)
  Sender: FDA-Public Use
  Company Number: A0655085A

PATIENT
  Age: 10 Year
  Sex: Female

DRUGS (15)
  1. LAMIVUDINE [Suspect]
     Indication: DRUG USE FOR UNKNOWN INDICATION
     Route: 048
  2. AMBISOME [Suspect]
     Indication: DRUG USE FOR UNKNOWN INDICATION
     Route: 042
  3. AMIKIN [Suspect]
     Indication: DRUG USE FOR UNKNOWN INDICATION
     Route: 065
  4. DARUNAVIR [Suspect]
     Dosage: 375MG TWICE PER DAY
     Route: 048
  5. RITONAVIR [Suspect]
     Route: 048
  6. TENOFOVIR [Suspect]
     Route: 048
  7. TMC125 [Suspect]
     Dosage: 100MG TWICE PER DAY
     Route: 048
  8. CLARITHROMYCIN [Concomitant]
     Route: 048
  9. CLOBAZAM [Concomitant]
     Route: 048
  10. ETHAMBUTOL HYDROCHLORIDE [Concomitant]
     Route: 048
  11. FLUCONAZOLE [Concomitant]
     Route: 048
  12. IMMUNOGLOBULINS [Concomitant]
     Route: 042
  13. MEPRON [Concomitant]
  14. PREDNISONE TAB [Concomitant]
  15. RIFABUTIN [Concomitant]
     Route: 048

REACTIONS (8)
  - ABDOMINAL DISTENSION [None]
  - ABDOMINAL PAIN [None]
  - DIARRHOEA [None]
  - HYPOKALAEMIA [None]
  - MALAISE [None]
  - PYREXIA [None]
  - RENAL FAILURE ACUTE [None]
  - TACHYCARDIA [None]
